FAERS Safety Report 10213056 (Version 1)
Quarter: 2014Q2

REPORT INFORMATION
  Report Type: Report from Study
  Country: US (occurrence: US)
  Receive Date: 20140603
  Receipt Date: 20140603
  Transmission Date: 20141212
  Serious: Yes (Death)
  Sender: FDA-Public Use
  Company Number: US-ROCHE-1411137

PATIENT
  Age: 54 Year
  Sex: Female

DRUGS (2)
  1. VALCYTE [Suspect]
     Indication: LUNG TRANSPLANT
     Dosage: 2 TABLETS
     Route: 048
  2. VALCYTE [Suspect]
     Dosage: 1 TABLET
     Route: 048

REACTIONS (1)
  - Death [Fatal]
